FAERS Safety Report 15373599 (Version 2)
Quarter: 2018Q3

REPORT INFORMATION
  Report Type: Spontaneous
  Country: US (occurrence: US)
  Receive Date: 20180912
  Receipt Date: 20180917
  Transmission Date: 20181010
  Serious: No
  Sender: FDA-Public Use
  Company Number: US-PFIZER INC-2018360839

PATIENT
  Age: 71 Year
  Sex: Male

DRUGS (1)
  1. LYRICA [Suspect]
     Active Substance: PREGABALIN
     Indication: POST LAMINECTOMY SYNDROME
     Dosage: 200 MG, 3X/DAY (THREE A DAY/1 CAPSULE 3 TIMES A DAY)
     Route: 048

REACTIONS (3)
  - Vomiting [Unknown]
  - Cold sweat [Unknown]
  - Incoherent [Unknown]
